FAERS Safety Report 24242677 (Version 3)
Quarter: 2025Q3

REPORT INFORMATION
  Report Type: Report from Study
  Country: US (occurrence: US)
  Receive Date: 20240823
  Receipt Date: 20250810
  Transmission Date: 20251021
  Serious: No
  Sender: ALEXION PHARMACEUTICALS
  Company Number: US-AstraZeneca-CH-00686661A

PATIENT
  Age: 63 Year
  Sex: Female

DRUGS (1)
  1. STRENSIQ [Suspect]
     Active Substance: ASFOTASE ALFA
     Indication: Hypophosphatasia
     Route: 065

REACTIONS (7)
  - Arthralgia [Not Recovered/Not Resolved]
  - Fall [Recovering/Resolving]
  - Bone contusion [Recovering/Resolving]
  - Weight decreased [Unknown]
  - Pain in extremity [Not Recovered/Not Resolved]
  - Gait disturbance [Unknown]
  - Injection site pain [Unknown]

NARRATIVE: CASE EVENT DATE: 20240701
